FAERS Safety Report 7710155-9 (Version None)
Quarter: 2011Q3

REPORT INFORMATION
  Report Type: 
  Country: None (occurrence: None)
  Receive Date: 20110825
  Receipt Date: 20110822
  Transmission Date: 20111222
  Serious: Yes (Hospitalization, Other)
  Sender: FDA-Public Use
  Company Number: DK-PFIZER INC-2011092327

PATIENT
  Age: 79 Year
  Sex: Male

DRUGS (2)
  1. OPTIRAY 160 [Suspect]
     Indication: COMPUTERISED TOMOGRAM
     Dosage: UNK
     Dates: start: 20100804
  2. RAMIPRIL [Suspect]
     Dosage: UNK

REACTIONS (4)
  - RENAL FAILURE [None]
  - PNEUMONIA [None]
  - BLADDER CATHETERISATION [None]
  - EMOTIONAL DISTRESS [None]
